FAERS Safety Report 21404753 (Version 1)
Quarter: 2022Q3

REPORT INFORMATION
  Report Type: Spontaneous
  Country: US (occurrence: None)
  Receive Date: 20220930
  Receipt Date: 20220930
  Transmission Date: 20221027
  Serious: Yes (Hospitalization)
  Sender: FDA-Public Use
  Company Number: None

PATIENT
  Age: 83 Year
  Sex: Male

DRUGS (1)
  1. METFORMIN HYDROCHLORIDE [Suspect]
     Active Substance: METFORMIN HYDROCHLORIDE
     Indication: Diabetes mellitus
     Dates: start: 20220509, end: 20220915

REACTIONS (6)
  - Acute kidney injury [None]
  - Dialysis [None]
  - Distributive shock [None]
  - Lactic acidosis [None]
  - Acute kidney injury [None]
  - Prerenal failure [None]

NARRATIVE: CASE EVENT DATE: 20220831
